FAERS Safety Report 9571490 (Version 1)
Quarter: 2013Q1

REPORT INFORMATION
  Report Type: Spontaneous
  Country: US (occurrence: None)
  Receive Date: 20130305
  Receipt Date: 20130305
  Transmission Date: 20140127
  Serious: Yes (Hospitalization)
  Sender: FDA-Public Use
  Company Number: 163-21880-12050106

PATIENT
  Age: 85 Year
  Sex: Female

DRUGS (3)
  1. REVLIMID [Suspect]
     Indication: MYELODYSPLASTIC SYNDROME
     Dosage: 1 IN 1 D
     Route: 048
     Dates: start: 20111228, end: 201201
  2. ASA (ACETYLSALICYLIC ACID) [Concomitant]
  3. METOPROLOL (METOPROLOL) [Concomitant]

REACTIONS (2)
  - Constipation [None]
  - Diverticulitis [None]
